FAERS Safety Report 20917298 (Version 1)
Quarter: 2022Q2

REPORT INFORMATION
  Report Type: Spontaneous
  Country: SE (occurrence: SE)
  Receive Date: 20220606
  Receipt Date: 20220606
  Transmission Date: 20220720
  Serious: Yes (Other)
  Sender: FDA-Public Use
  Company Number: None

PATIENT
  Age: 53 Year
  Sex: Male

DRUGS (5)
  1. JARDIANCE [Suspect]
     Active Substance: EMPAGLIFLOZIN
     Indication: Diabetes mellitus
     Route: 048
     Dates: start: 20211103, end: 20220331
  2. Atorvastatin Krka 40 mg Filmdragerad tablett [Concomitant]
     Indication: Product used for unknown indication
     Route: 048
     Dates: start: 20180718, end: 20220331
  3. Enalapril comp ratiopharm 20 mg/12,5 mg Tablett [Concomitant]
     Indication: Product used for unknown indication
     Dosage: 20MG/12,5MG
     Route: 048
     Dates: start: 20211026, end: 20220401
  4. METFORMIN HYDROCHLORIDE [Concomitant]
     Active Substance: METFORMIN HYDROCHLORIDE
     Indication: Product used for unknown indication
     Route: 048
     Dates: start: 20180316, end: 20220405
  5. Amlodipine Vitabalans 5 mg Tablett [Concomitant]
     Indication: Product used for unknown indication
     Route: 048
     Dates: start: 20220308

REACTIONS (4)
  - Postrenal failure [Not Recovered/Not Resolved]
  - Urinary retention [Not Recovered/Not Resolved]
  - Cystitis [Not Recovered/Not Resolved]
  - Renal failure [Not Recovered/Not Resolved]

NARRATIVE: CASE EVENT DATE: 20220101
